FAERS Safety Report 21839214 (Version 1)
Quarter: 2023Q1

REPORT INFORMATION
  Report Type: Spontaneous
  Country: US (occurrence: None)
  Receive Date: 20230107
  Receipt Date: 20230107
  Transmission Date: 20230418
  Serious: Yes (Hospitalization)
  Sender: FDA-Public Use
  Company Number: None

PATIENT
  Age: 69 Year
  Sex: Male
  Weight: 67.13 kg

DRUGS (1)
  1. SULFAMETHOXAZOLE\TRIMETHOPRIM [Suspect]
     Active Substance: SULFAMETHOXAZOLE\TRIMETHOPRIM
     Indication: Urinary tract infection
     Dosage: OTHER QUANTITY : 1 TAB;?FREQUENCY : TWICE A DAY;?
     Route: 048
     Dates: start: 20221031, end: 20221108

REACTIONS (6)
  - Hyperkalaemia [None]
  - Acute kidney injury [None]
  - Crystal urine present [None]
  - Systolic dysfunction [None]
  - Brain natriuretic peptide decreased [None]
  - Coronary artery disease [None]

NARRATIVE: CASE EVENT DATE: 20221108
